FAERS Safety Report 24224693 (Version 2)
Quarter: 2024Q3

REPORT INFORMATION
  Report Type: Report from Study
  Country: AU (occurrence: AU)
  Receive Date: 20240819
  Receipt Date: 20240827
  Transmission Date: 20241016
  Serious: Yes (Hospitalization)
  Sender: IPSEN
  Company Number: AU-IPSEN Group, Research and Development-2024-14267

PATIENT
  Age: 2 Year
  Sex: Female

DRUGS (6)
  1. BYLVAY [Suspect]
     Active Substance: ODEVIXIBAT
     Indication: Progressive familial intrahepatic cholestasis
     Dosage: 600 MCG (60MCG/KG/DAY)
     Route: 048
  2. BYLVAY [Suspect]
     Active Substance: ODEVIXIBAT
     Dosage: 600 MCG (120MCG/ KG/ DAY) TWICE DAILY (DOSE INCREASED)
     Route: 065
  3. BYLVAY [Suspect]
     Active Substance: ODEVIXIBAT
     Dosage: 800 MCG (120MCG/ KG/ DAY) TWICE DAILY (DOSE INCREASED WITH WEIGHT)
     Route: 048
  4. BYLVAY [Suspect]
     Active Substance: ODEVIXIBAT
     Dosage: 800/ 1200 MCG (120 MCG/ KG/ DAY) (DOSE INCREASED)
     Route: 048
  5. RIFAMPIN [Concomitant]
     Active Substance: RIFAMPIN
     Indication: Pruritus
     Dosage: UNKNOWN
  6. RIFAMPIN [Concomitant]
     Active Substance: RIFAMPIN
     Dosage: DOSE INCREASED IN LINE WITH WEIGHT

REACTIONS (6)
  - Pruritus [Not Recovered/Not Resolved]
  - Viral infection [Unknown]
  - Poor quality sleep [Unknown]
  - Diarrhoea [Not Recovered/Not Resolved]
  - Product supply issue [Unknown]
  - Off label use [Unknown]
